FAERS Safety Report 4534091-4 (Version None)
Quarter: 2004Q4

REPORT INFORMATION
  Report Type: 
  Country: None (occurrence: None)
  Receive Date: 20041222
  Receipt Date: 20041112
  Transmission Date: 20050328
  Serious: Yes (Hospitalization)
  Sender: FDA-Public Use
  Company Number: JP-JNJFOC-20040706485

PATIENT
  Sex: Female
  Weight: 49 kg

DRUGS (27)
  1. REMICADE [Suspect]
     Dosage: 4TH ADMINISTRATION
     Route: 042
  2. REMICADE [Suspect]
     Route: 042
  3. REMICADE [Suspect]
     Route: 042
  4. REMICADE [Suspect]
     Indication: RHEUMATOID ARTHRITIS
     Route: 042
  5. RHEUMATREX [Suspect]
     Indication: RHEUMATOID ARTHRITIS
     Route: 049
  6. VOLTAREN [Suspect]
     Indication: RHEUMATOID ARTHRITIS
  7. PREDONIN [Suspect]
     Indication: RHEUMATOID ARTHRITIS
     Route: 049
  8. RIMATIL [Suspect]
     Indication: RHEUMATOID ARTHRITIS
     Route: 049
  9. INDOMETHACIN [Suspect]
     Indication: RHEUMATOID ARTHRITIS
  10. CYOTEC [Concomitant]
     Indication: DRUG USE FOR UNKNOWN INDICATION
     Dosage: (200)
     Route: 049
  11. FARNEZONE [Concomitant]
     Indication: RHEUMATOID ARTHRITIS
  12. SERASTAR [Concomitant]
     Indication: RHEUMATOID ARTHRITIS
     Route: 062
  13. STICKZENOL A [Concomitant]
     Indication: RHEUMATOID ARTHRITIS
     Dosage: ADMIN. ROUTE: LINIMENT
  14. SUVENYL [Concomitant]
     Indication: RHEUMATOID ARTHRITIS
  15. FOLIAMIN [Concomitant]
     Route: 049
  16. LAXOBERON [Concomitant]
     Indication: CONSTIPATION
     Route: 049
  17. SP TROACHES [Concomitant]
     Route: 049
  18. VITAMEDIN [Concomitant]
     Route: 049
  19. VITAMEDIN [Concomitant]
     Route: 049
  20. VITAMEDIN [Concomitant]
     Dosage: 6 CAP (3X) PER DAY
     Route: 049
  21. CEREKINON [Concomitant]
     Indication: GASTROINTESTINAL DISORDER THERAPY
     Dosage: (100)
     Route: 049
  22. ASPARA CA [Concomitant]
     Indication: OSTEOPOROSIS PROPHYLAXIS
     Route: 049
  23. JUVELA [Concomitant]
     Indication: PROMOTION OF PERIPHERAL CIRCULATION
     Route: 049
  24. MAGNESIUM OXIDE [Concomitant]
     Indication: GASTROINTESTINAL DISORDER THERAPY
     Route: 049
  25. ROCALTROL [Concomitant]
     Indication: OSTEOPOROSIS PROPHYLAXIS
     Dosage: (0.5)
     Route: 049
  26. OMEPRAL [Concomitant]
     Indication: GASTROINTESTINAL DISORDER THERAPY
     Dosage: (20)
     Route: 049
  27. EURODIN [Concomitant]
     Indication: INSOMNIA
     Route: 049

REACTIONS (3)
  - ARTHRALGIA [None]
  - ENTEROBACTER INFECTION [None]
  - GASTROENTERITIS BACTERIAL [None]
